FAERS Safety Report 4762516-8 (Version None)
Quarter: 2005Q3

REPORT INFORMATION
  Report Type: 
  Country: None (occurrence: None)
  Receive Date: 20050902
  Receipt Date: 20050520
  Transmission Date: 20060218
  Serious: Yes (Other)
  Sender: FDA-Public Use
  Company Number: 2005S1002249

PATIENT
  Age: 59 Year
  Sex: Male
  Weight: 82.1011 kg

DRUGS (22)
  1. FENTANYL TRANSDERMAL SYSTEM [Suspect]
     Indication: BONE NEOPLASM MALIGNANT
     Dosage: 50 MCG/HR; Q3D; TDER
     Route: 062
     Dates: start: 20050301, end: 20050416
  2. FENTANYL TRANSDERMAL SYSTEM [Suspect]
     Indication: BONE NEOPLASM MALIGNANT
     Dosage: 25 MCG/HR; Q3D; TDER
     Route: 062
  3. FENTANYL TRANSDERMAL SYSTEM [Suspect]
     Indication: BONE NEOPLASM MALIGNANT
     Dosage: 75 MCG/HR; Q3D; TDER
     Route: 062
  4. FENTANYL TRANSDERMAL SYSTEM [Suspect]
  5. FENTANYL TRANSDERMAL SYSTEM [Suspect]
     Indication: BONE NEOPLASM MALIGNANT
     Dosage: 100 MCG/HR; Q3D; TDER
     Route: 062
  6. METOPROLOL [Concomitant]
  7. GLYBURIDE [Concomitant]
  8. TRAZODONE [Concomitant]
  9. ALLOPURINOL [Concomitant]
  10. PARACETAMOL/OXYCODONE HYDROCHLORIDE [Concomitant]
  11. METFORMIN [Concomitant]
  12. CLONAZEPAM [Concomitant]
  13. COLCHICINE [Concomitant]
  14. PREDNISONE [Concomitant]
  15. HYDROXYZINE HYDROCHLORIDE [Concomitant]
  16. ALBUTEROL [Concomitant]
  17. ONDANSETRON HYDROCHLORIDE [Concomitant]
  18. HYDROCHLOROTHIAZIDE [Concomitant]
  19. METHADONE HCL [Concomitant]
  20. VITAMINS [Concomitant]
  21. ASCORBIC ACID [Concomitant]
  22. ASPIRIN [Concomitant]

REACTIONS (2)
  - APPLICATION SITE ERYTHEMA [None]
  - DRUG EFFECT DECREASED [None]
